FAERS Safety Report 9717614 (Version 3)
Quarter: 2014Q2

REPORT INFORMATION
  Report Type: Report from Study
  Country: US (occurrence: US)
  Receive Date: 20131127
  Receipt Date: 20140414
  Transmission Date: 20141212
  Serious: Yes (Other)
  Sender: FDA-Public Use
  Company Number: US-US-EMD SERONO, INC.-7252345

PATIENT
  Age: 52 Year
  Sex: Female

DRUGS (2)
  1. REBIF [Suspect]
     Indication: PRODUCT USED FOR UNKNOWN INDICATION
     Route: 058
     Dates: start: 20130325, end: 20131120
  2. REBIF [Suspect]
     Route: 058

REACTIONS (4)
  - Autoimmune thyroiditis [Unknown]
  - Diverticulitis [Recovering/Resolving]
  - Hepatic enzyme increased [Recovering/Resolving]
  - Injection site erythema [Not Recovered/Not Resolved]
